FAERS Safety Report 18919217 (Version 4)
Quarter: 2022Q3

REPORT INFORMATION
  Report Type: Report from Study
  Country: US (occurrence: US)
  Receive Date: 20210220
  Receipt Date: 20220702
  Transmission Date: 20221027
  Serious: Yes (Other)
  Sender: FDA-Public Use
  Company Number: US-NOVARTISPH-NVSC2021US035902

PATIENT
  Age: 83 Year
  Sex: Female
  Weight: 81.633 kg

DRUGS (1)
  1. GLEEVEC [Suspect]
     Active Substance: IMATINIB MESYLATE
     Indication: Leukaemia
     Dosage: 400 MG, QD
     Route: 048
     Dates: start: 20150604

REACTIONS (7)
  - Melaena [Unknown]
  - Neoplasm malignant [Unknown]
  - Asthenia [Unknown]
  - Dizziness [Unknown]
  - Bowel movement irregularity [Unknown]
  - Dysphagia [Unknown]
  - Fatigue [Unknown]

NARRATIVE: CASE EVENT DATE: 20220623
